FAERS Safety Report 24562561 (Version 1)
Quarter: 2024Q4

REPORT INFORMATION
  Report Type: Spontaneous
  Country: US (occurrence: US)
  Receive Date: 20241029
  Receipt Date: 20241029
  Transmission Date: 20250115
  Serious: Yes (Other)
  Sender: ADMA BIOLOGICS
  Company Number: US-ADMA BIOLOGICS INC.-US-2024ADM000139

PATIENT
  Age: 59 Year
  Sex: Female

DRUGS (2)
  1. HUMAN IMMUNOGLOBULIN G [Suspect]
     Active Substance: HUMAN IMMUNOGLOBULIN G
     Indication: Chronic inflammatory demyelinating polyradiculoneuropathy
     Dosage: UNK, MONTHLY
     Route: 042
  2. ZINC [Suspect]
     Active Substance: ZINC
     Indication: COVID-19 prophylaxis
     Dosage: UNK UNK, QD
     Route: 065
     Dates: start: 2021

REACTIONS (3)
  - Chronic inflammatory demyelinating polyradiculoneuropathy [Unknown]
  - Disease progression [Unknown]
  - Off label use [Unknown]
